FAERS Safety Report 13014787 (Version 2)
Quarter: 2017Q1

REPORT INFORMATION
  Report Type: Spontaneous
  Country: JP (occurrence: JP)
  Receive Date: 20161209
  Receipt Date: 20170201
  Transmission Date: 20170428
  Serious: Yes (Death, Hospitalization, Other)
  Sender: FDA-Public Use
  Company Number: JP-BAUSCH-BL-2016-030279

PATIENT
  Age: 2 Year
  Sex: Male
  Weight: 11.5 kg

DRUGS (1)
  1. NIFEDIPINE. [Suspect]
     Active Substance: NIFEDIPINE
     Indication: ACCIDENTAL EXPOSURE TO PRODUCT
     Route: 048

REACTIONS (5)
  - Dizziness [Unknown]
  - Seizure [Unknown]
  - Cardiac arrest [Unknown]
  - Accidental exposure to product [Unknown]
  - Toxicity to various agents [Fatal]
